FAERS Safety Report 24595633 (Version 2)
Quarter: 2025Q1

REPORT INFORMATION
  Report Type: Report from Study
  Country: IE (occurrence: IE)
  Receive Date: 20241109
  Receipt Date: 20250103
  Transmission Date: 20250408
  Serious: Yes (Other)
  Sender: ALEXION PHARMACEUTICALS
  Company Number: IE-ASTRAZENECA-202410EEA029529IE

PATIENT
  Age: 36 Year

DRUGS (14)
  1. BENRALIZUMAB [Suspect]
     Active Substance: BENRALIZUMAB
     Indication: Asthma
  2. BENRALIZUMAB [Suspect]
     Active Substance: BENRALIZUMAB
     Route: 058
  3. BENRALIZUMAB [Suspect]
     Active Substance: BENRALIZUMAB
  4. BENRALIZUMAB [Suspect]
     Active Substance: BENRALIZUMAB
     Route: 058
  5. BENRALIZUMAB [Suspect]
     Active Substance: BENRALIZUMAB
  6. BENRALIZUMAB [Suspect]
     Active Substance: BENRALIZUMAB
     Route: 058
  7. BENRALIZUMAB [Suspect]
     Active Substance: BENRALIZUMAB
  8. BENRALIZUMAB [Suspect]
     Active Substance: BENRALIZUMAB
     Route: 058
  9. PREDNISONE [Concomitant]
     Active Substance: PREDNISONE
  10. SINGULAIR [Concomitant]
     Active Substance: MONTELUKAST SODIUM
  11. ALVESCO [Concomitant]
     Active Substance: CICLESONIDE
  12. RYALTRIS [Concomitant]
     Active Substance: MOMETASONE FUROATE MONOHYDRATE\OLOPATADINE HYDROCHLORIDE
  13. SYMBICORT [Concomitant]
     Active Substance: BUDESONIDE\FORMOTEROL FUMARATE DIHYDRATE
     Route: 050
  14. SYMBICORT [Concomitant]
     Active Substance: BUDESONIDE\FORMOTEROL FUMARATE DIHYDRATE
     Route: 050

REACTIONS (3)
  - Lower respiratory tract infection [Unknown]
  - Pharyngitis [Unknown]
  - Oropharyngeal pain [Unknown]
